FAERS Safety Report 7269785-3 (Version None)
Quarter: 2011Q1

REPORT INFORMATION
  Report Type: 
  Country: None (occurrence: None)
  Receive Date: 20110124
  Receipt Date: 20110111
  Transmission Date: 20110831
  Serious: Yes (Death, Hospitalization)
  Sender: FDA-Public Use
  Company Number: 2009AC000382

PATIENT
  Age: 81 Year
  Sex: Male
  Weight: 80.2867 kg

DRUGS (21)
  1. BICARBONATE [Concomitant]
  2. FUROSEMIDE [Concomitant]
  3. SIMVASTATIN [Concomitant]
  4. FUROSEMIDE [Concomitant]
  5. WARFARIN SODIUM [Concomitant]
  6. VIGRA [Concomitant]
  7. LEVOPHED [Concomitant]
  8. ASPIRIN [Concomitant]
  9. SPIRONOLACTONE [Concomitant]
  10. CARVEDILOL [Concomitant]
  11. GLYBURIDE [Concomitant]
  12. NITROSTAT [Concomitant]
  13. LEVOTHYROXINE SODIUM [Concomitant]
  14. DIGOXIN [Suspect]
     Indication: ATRIAL FIBRILLATION
     Dosage: 0.125 MG;QD;PO
     Route: 048
     Dates: start: 20080318, end: 20080501
  15. ASPIRIN [Concomitant]
  16. MULTI-VITAMIN [Concomitant]
  17. ZESTRIL [Concomitant]
  18. PHENERGAN [Concomitant]
  19. LEVAQUIN [Concomitant]
  20. CAPOTEN [Concomitant]
  21. HEPARIN SUBCU [Concomitant]

REACTIONS (23)
  - INJURY [None]
  - BRADYCARDIA [None]
  - NASAL CONGESTION [None]
  - ATRIAL FIBRILLATION [None]
  - ATRIAL FLUTTER [None]
  - ACTIVITIES OF DAILY LIVING IMPAIRED [None]
  - SEPSIS [None]
  - RENAL TUBULAR NECROSIS [None]
  - ACUTE RESPIRATORY DISTRESS SYNDROME [None]
  - METABOLIC ACIDOSIS [None]
  - RESPIRATORY FAILURE [None]
  - ISCHAEMIC HEPATITIS [None]
  - ECONOMIC PROBLEM [None]
  - ASTHENIA [None]
  - CARDIAC FAILURE CONGESTIVE [None]
  - RENAL FAILURE ACUTE [None]
  - CARDIORENAL SYNDROME [None]
  - HYPOTENSION [None]
  - PNEUMONIA [None]
  - MENTAL DISORDER [None]
  - CONDITION AGGRAVATED [None]
  - ACUTE MYOCARDIAL INFARCTION [None]
  - REFUSAL OF TREATMENT BY PATIENT [None]
